FAERS Safety Report 6941726-5 (Version None)
Quarter: 2010Q3

REPORT INFORMATION
  Report Type: 
  Country: None (occurrence: None)
  Receive Date: 20100826
  Receipt Date: 20100818
  Transmission Date: 20110219
  Serious: Yes (Hospitalization)
  Sender: FDA-Public Use
  Company Number: US-BIOGENIDEC-2010BI028855

PATIENT
  Age: 51 Year
  Sex: Female
  Weight: 74 kg

DRUGS (9)
  1. TYSABRI [Suspect]
     Indication: MULTIPLE SCLEROSIS
     Route: 042
     Dates: start: 20090616
  2. LORAZEPAM [Concomitant]
     Indication: ANXIETY
  3. EFFEXOR [Concomitant]
     Indication: DEPRESSION
  4. ALHAGAN 1% DROPS [Concomitant]
     Indication: VISUAL ACUITY REDUCED
  5. ZANAFLEX [Concomitant]
     Indication: MUSCLE SPASMS
  6. TEGRETOL [Concomitant]
     Indication: MUSCLE SPASMS
  7. AMITRIPTYLINE HCL [Concomitant]
     Indication: NEURALGIA
  8. PROVIGIL [Concomitant]
     Indication: FATIGUE
  9. AMANTADINE [Concomitant]
     Indication: FATIGUE

REACTIONS (5)
  - CHOKING [None]
  - CONFUSIONAL STATE [None]
  - MEMORY IMPAIRMENT [None]
  - OESOPHAGEAL SPASM [None]
  - SLEEP APNOEA SYNDROME [None]
